FAERS Safety Report 5781801-4 (Version None)
Quarter: 2008Q2

REPORT INFORMATION
  Report Type: 
  Country: None (occurrence: None)
  Receive Date: 20080618
  Receipt Date: 20080606
  Transmission Date: 20081010
  Serious: Yes (Hospitalization, Other)
  Sender: FDA-Public Use
  Company Number: 2008-02098

PATIENT
  Age: 56 Year
  Sex: Male

DRUGS (21)
  1. VELCADE [Suspect]
     Indication: MULTIPLE MYELOMA
     Dates: start: 20071101, end: 20080101
  2. CYCOPHOSPHAMIDE(CYCLOPHOSPHAMIDE) VIAL [Suspect]
     Indication: MULTIPLE MYELOMA
     Dates: start: 20071101, end: 20080101
  3. DEXAMETHASONE TAB [Suspect]
     Indication: MULTIPLE MYELOMA
     Dates: start: 20070101, end: 20080101
  4. ETOPOSIDE [Suspect]
     Indication: MULTIPLE MYELOMA
     Dates: start: 20080101
  5. ACETYLSALICYLIC ACID SRT [Concomitant]
  6. CARVEDILOL [Concomitant]
  7. ATACAND [Concomitant]
  8. LEXOTANIL (BROMAZEPAM) [Concomitant]
  9. POTASSIUM CHLORIDE [Concomitant]
  10. PREGABALIN (FOLIC ACID, FERROUS SULFATE EXSICCATED) [Concomitant]
  11. AMITRIPTYLINE HYDROCHLORIDE [Concomitant]
  12. CLONIDINE [Concomitant]
  13. METHADONE HCL [Concomitant]
  14. AMLODIPINE [Concomitant]
  15. PENTOXIFYLLINE [Concomitant]
  16. MULTIBIONTA (CYANOCOBALAMIN, RUTOSIDE, CALCIUM PANTOTHENATE, NICOTINAM [Concomitant]
  17. PALMITATE, PYRIDOXINE HYDROCHLORIDE, THIAMINE HYDROCHLORIDE, TOCOPHERY [Concomitant]
  18. NOVALGIN (METAMIZOLE SODIUM) [Concomitant]
  19. MAGNESIUM (MAGNESIUM) [Concomitant]
  20. PANTOPRAZOLE SODIUM [Concomitant]
  21. PAMIDRONATE DISODIUM [Concomitant]

REACTIONS (9)
  - BURNING SENSATION [None]
  - DEPRESSED MOOD [None]
  - EYELID PTOSIS [None]
  - NERVE CONDUCTION STUDIES ABNORMAL [None]
  - PAIN IN EXTREMITY [None]
  - PARAESTHESIA [None]
  - POLYNEUROPATHY [None]
  - STEM CELL TRANSPLANT [None]
  - TEMPERATURE PERCEPTION TEST ABNORMAL [None]
